FAERS Safety Report 5406233-X (Version None)
Quarter: 2007Q3

REPORT INFORMATION
  Report Type: 
  Country: None (occurrence: None)
  Receive Date: 20070802
  Receipt Date: 20070802
  Transmission Date: 20080115
  Serious: Yes (Death)
  Sender: FDA-Public Use
  Company Number: None

PATIENT
  Age: 64 Year
  Sex: Male
  Weight: 96.1626 kg

DRUGS (1)
  1. LIPITOR [Suspect]
     Indication: BLOOD CHOLESTEROL INCREASED
     Dosage: 20 MG 1 X DAY
     Dates: start: 20030201, end: 20030215

REACTIONS (3)
  - AMYOTROPHIC LATERAL SCLEROSIS [None]
  - MUSCLE SPASMS [None]
  - WEIGHT DECREASED [None]
